FAERS Safety Report 25327209 (Version 1)
Quarter: 2025Q2

REPORT INFORMATION
  Report Type: Spontaneous
  Country: GB (occurrence: GB)
  Receive Date: 20250517
  Receipt Date: 20250517
  Transmission Date: 20250716
  Serious: Yes (Life-Threatening)
  Sender: AUROBINDO
  Company Number: GB-MHRA-MED-202505012029500620-GRWFC

PATIENT
  Age: 60 Year
  Sex: Female
  Weight: 55 kg

DRUGS (1)
  1. FEXOFENADINE HYDROCHLORIDE [Suspect]
     Active Substance: FEXOFENADINE HYDROCHLORIDE
     Indication: Sinus headache
     Route: 065

REACTIONS (1)
  - Bradyphrenia [Recovered/Resolved]
